FAERS Safety Report 13336006 (Version 3)
Quarter: 2017Q2

REPORT INFORMATION
  Report Type: Report from Study
  Country: US (occurrence: US)
  Receive Date: 20170314
  Receipt Date: 20170425
  Transmission Date: 20170830
  Serious: Yes (Hospitalization)
  Sender: FDA-Public Use
  Company Number: US-SEATTLE GENETICS-2017SGN00489

PATIENT

DRUGS (5)
  1. BRENTUXIMAB VEDOTIN [Suspect]
     Active Substance: BRENTUXIMAB VEDOTIN
     Indication: HODGKIN^S DISEASE
     Dosage: 1.8 MG/KG, Q21D
     Route: 042
     Dates: start: 20170213, end: 20170213
  2. CLARITIN [Concomitant]
     Active Substance: LORATADINE
     Indication: RASH MORBILLIFORM
     Dosage: UNK
     Dates: start: 20170220, end: 20170220
  3. BENADRYL                           /00945501/ [Concomitant]
     Active Substance: ACRIVASTINE
     Indication: RASH MORBILLIFORM
     Dosage: UNK
     Dates: start: 20170220, end: 20170220
  4. NIVOLUMAB [Suspect]
     Active Substance: NIVOLUMAB
     Indication: HODGKIN^S DISEASE
     Dosage: 3 MG/KG, Q21D
     Route: 042
     Dates: start: 20170213, end: 20170213
  5. PREDNISONE                         /00044702/ [Concomitant]
     Active Substance: PREDNISONE
     Indication: RASH MORBILLIFORM
     Dosage: UNK
     Route: 048
     Dates: start: 20170223, end: 20170227

REACTIONS (1)
  - Non-cardiac chest pain [Recovered/Resolved]

NARRATIVE: CASE EVENT DATE: 20170301
